FAERS Safety Report 14487598 (Version 3)
Quarter: 2018Q1

REPORT INFORMATION
  Report Type: Spontaneous
  Country: US (occurrence: US)
  Receive Date: 20180205
  Receipt Date: 20180214
  Transmission Date: 20180509
  Serious: No
  Sender: FDA-Public Use
  Company Number: US-BIOGEN-2018BI00518306

PATIENT
  Age: 46 Year
  Sex: Female
  Weight: 72.64 kg

DRUGS (2)
  1. TECFIDERA [Suspect]
     Active Substance: DIMETHYL FUMARATE
     Dosage: STARTING DOSE
     Route: 048
     Dates: start: 20180127, end: 20180130
  2. TECFIDERA [Suspect]
     Active Substance: DIMETHYL FUMARATE
     Indication: MULTIPLE SCLEROSIS
     Route: 048
     Dates: start: 20180125

REACTIONS (5)
  - Anxiety [Not Recovered/Not Resolved]
  - Nausea [Recovered/Resolved]
  - Pain [Recovered/Resolved]
  - Headache [Recovered/Resolved]
  - Fatigue [Not Recovered/Not Resolved]

NARRATIVE: CASE EVENT DATE: 20180127
